FAERS Safety Report 14166373 (Version 1)
Quarter: 2017Q4

REPORT INFORMATION
  Report Type: Spontaneous
  Country: US (occurrence: US)
  Receive Date: 20171106
  Receipt Date: 20171106
  Transmission Date: 20180321
  Serious: No
  Sender: FDA-Public Use
  Company Number: None

PATIENT
  Sex: Female
  Weight: 81 kg

DRUGS (14)
  1. BLACK SEED OIL [Concomitant]
  2. VITAMIN B12 [Concomitant]
     Active Substance: CYANOCOBALAMIN
  3. LORSANTAN HCTZ 100/25 [Suspect]
     Active Substance: HYDROCHLOROTHIAZIDE\LOSARTAN POTASSIUM
     Indication: BLOOD PRESSURE MEASUREMENT
     Dosage: ?          QUANTITY:30 TABLET(S);?
     Route: 048
     Dates: start: 20170706, end: 20171106
  4. VITAMIN C [Concomitant]
     Active Substance: ASCORBIC ACID
  5. CHIA SEEDS [Concomitant]
     Active Substance: OMEGA-3 FATTY ACIDS
  6. FLAX SEEDS [Concomitant]
     Active Substance: FLAX SEEDS
  7. GREEN JUICES [Concomitant]
  8. OREGANO OIL [Concomitant]
  9. VITAMIN D3 [Concomitant]
     Active Substance: CHOLECALCIFEROL
  10. CHLOROPHYLL [Concomitant]
  11. GINGER. [Concomitant]
     Active Substance: GINGER
  12. MULTI VITAMIN [Concomitant]
     Active Substance: VITAMINS
  13. CRANBERRY. [Concomitant]
     Active Substance: CRANBERRY
  14. PHYTO STEM [Concomitant]

REACTIONS (5)
  - Urticaria [None]
  - Hypersensitivity [None]
  - Throat irritation [None]
  - Pruritus [None]
  - Paraesthesia oral [None]

NARRATIVE: CASE EVENT DATE: 20170831
